FAERS Safety Report 6020704-7 (Version None)
Quarter: 2008Q4

REPORT INFORMATION
  Report Type: 
  Country: None (occurrence: None)
  Receive Date: 20081223
  Receipt Date: 20081223
  Transmission Date: 20090506
  Serious: Yes (Hospitalization)
  Sender: FDA-Public Use
  Company Number: None

PATIENT
  Sex: Female
  Weight: 59 kg

DRUGS (7)
  1. CYCLOPHOSPHAMIDE [Suspect]
     Dosage: 954 MG
  2. DOXORUBICIN HYDROCHLORIDE [Suspect]
     Dosage: 95 MG
  3. DIOVAN [Concomitant]
  4. ACTOS [Concomitant]
  5. ASPIRIN [Concomitant]
  6. LIPITOR [Concomitant]
  7. NEULASTA [Concomitant]

REACTIONS (9)
  - ANAEMIA [None]
  - ASTHENIA [None]
  - BODY TEMPERATURE INCREASED [None]
  - CONFUSIONAL STATE [None]
  - FALL [None]
  - HYPOVOLAEMIA [None]
  - MUSCULOSKELETAL PAIN [None]
  - NEUTROPENIA [None]
  - THROMBOCYTOPENIA [None]
